FAERS Safety Report 6132846-6 (Version None)
Quarter: 2009Q1

REPORT INFORMATION
  Report Type: 
  Country: None (occurrence: None)
  Receive Date: 20090324
  Receipt Date: 20090324
  Transmission Date: 20090719
  Serious: No
  Sender: FDA-Public Use
  Company Number: None

PATIENT
  Age: 70 Year
  Sex: Male
  Weight: 122 kg

DRUGS (1)
  1. METOPROLOL TARTRATE [Suspect]
     Dosage: 50 MG BID PO
     Route: 048
     Dates: start: 20080418, end: 20090319

REACTIONS (1)
  - BRADYCARDIA [None]
